FAERS Safety Report 16968586 (Version 1)
Quarter: 2019Q4

REPORT INFORMATION
  Report Type: Spontaneous
  Country: US (occurrence: US)
  Receive Date: 20191029
  Receipt Date: 20191029
  Transmission Date: 20200122
  Serious: Yes (Other)
  Sender: FDA-Public Use
  Company Number: US-GLAND PHARMA LIMITED-2076112

PATIENT
  Age: 30 Year
  Sex: Female

DRUGS (9)
  1. LABETALOL HCL REGIMEN [Suspect]
     Active Substance: LABETALOL HYDROCHLORIDE
     Route: 042
  2. LABETALOL HYDROCHLORIDE. [Suspect]
     Active Substance: LABETALOL HYDROCHLORIDE
     Indication: GESTATIONAL HYPERTENSION
  3. BETAMETHASONE. [Suspect]
     Active Substance: BETAMETHASONE
  4. NIFEDIPINE XL [Concomitant]
     Active Substance: NIFEDIPINE
  5. PENICILLIN [Suspect]
     Active Substance: PENICILLIN
     Route: 042
  6. LABETALOL HCL REGIMEN [Suspect]
     Active Substance: LABETALOL HYDROCHLORIDE
     Route: 042
  7. MAGNESIUM SULFATE. [Suspect]
     Active Substance: MAGNESIUM SULFATE
  8. NIFEDIPINE XL [Concomitant]
     Active Substance: NIFEDIPINE
  9. NIFEDIPINE XL [Concomitant]
     Active Substance: NIFEDIPINE

REACTIONS (2)
  - Raynaud^s phenomenon [Recovered/Resolved]
  - Exposure during pregnancy [Unknown]
